FAERS Safety Report 17101654 (Version 3)
Quarter: 2020Q1

REPORT INFORMATION
  Report Type: Spontaneous
  Country: FR (occurrence: FR)
  Receive Date: 20191202
  Receipt Date: 20200109
  Transmission Date: 20200409
  Serious: Yes (Other)
  Sender: FDA-Public Use
  Company Number: NVSC2019FR047205

PATIENT
  Age: 24 Year
  Sex: Male
  Weight: 48 kg

DRUGS (15)
  1. TOBRAMYCIN. [Suspect]
     Active Substance: TOBRAMYCIN
     Dosage: 200 MG, QD
     Route: 065
     Dates: start: 20190716, end: 20190722
  2. PROGRAF [Concomitant]
     Active Substance: TACROLIMUS
     Indication: PROPHYLAXIS AGAINST TRANSPLANT REJECTION
     Dosage: 2 MG, QD (1 MILLIGRAM, TWO TIMES A DAY (BID))
     Route: 065
  3. TOBRAMYCIN. [Suspect]
     Active Substance: TOBRAMYCIN
     Indication: BACTERAEMIA
     Dosage: 200 MG, QD
     Route: 042
     Dates: start: 20190715, end: 20190722
  4. CEFTOLOZANE SULFATE [Suspect]
     Active Substance: CEFTOLOZANE SULFATE
     Indication: BACTERAEMIA
     Dosage: 3 DF, QD (1 G/ 0.5 G, 3 TIME/ 24 HOURS)
     Route: 042
     Dates: start: 20190729, end: 20190731
  5. CORTANCYL [Concomitant]
     Active Substance: PREDNISONE
     Indication: ANTIINFLAMMATORY THERAPY
     Dosage: 20 MG, QD
     Route: 048
  6. SKENAN [Concomitant]
     Active Substance: MORPHINE SULFATE
     Indication: PAIN PROPHYLAXIS
     Dosage: 1 OT, QD
     Route: 048
  7. CALCIPARINE [Concomitant]
     Active Substance: HEPARIN CALCIUM
     Indication: THROMBOSIS PROPHYLAXIS
     Dosage: 1 ML, QD (0.5 MILLILITER, TWO TIMES A DAY (BID))
     Route: 065
     Dates: start: 20190718, end: 20190801
  8. LASILIX [Concomitant]
     Active Substance: FUROSEMIDE
     Indication: SUPPORTIVE CARE
     Dosage: 20 MG, QD
     Route: 048
     Dates: end: 20190801
  9. VALGANCICLOVIR. [Suspect]
     Active Substance: VALGANCICLOVIR
     Indication: PROPHYLAXIS
     Dosage: 900 MG, QD
     Route: 048
     Dates: start: 20190719, end: 20190731
  10. BACTRIM [Suspect]
     Active Substance: SULFAMETHOXAZOLE\TRIMETHOPRIM
     Indication: PROPHYLAXIS
     Dosage: 3 DF, QW (1 TABLET, THREE TIMES A WEEK)
     Route: 048
     Dates: start: 20190725, end: 20190731
  11. COLISTIN [Concomitant]
     Active Substance: COLISTIN
     Indication: PRODUCT USED FOR UNKNOWN INDICATION
     Dosage: 6 DF, QD (2 MUI, TID)
     Route: 065
     Dates: start: 20190717
  12. TOBRAMYCIN. [Suspect]
     Active Substance: TOBRAMYCIN
     Indication: PNEUMONIA
     Dosage: 2 DF, QD (1 AMPOULE, BID)
     Route: 065
     Dates: start: 20190716
  13. VORICONAZOLE. [Suspect]
     Active Substance: VORICONAZOLE
     Indication: PROPHYLAXIS
     Dosage: 1 OT, QD (200 (UNITS NOT REPORTED), ONCE A DAY (QD))
     Route: 048
     Dates: start: 20190718, end: 20190731
  14. CEFTOLOZANE SULFATE [Suspect]
     Active Substance: CEFTOLOZANE SULFATE
     Indication: PNEUMONIA
     Dosage: 6 G, QD (2 GRAM, TID)
     Route: 042
     Dates: start: 20190719, end: 20190729
  15. CELLCEPT [Concomitant]
     Active Substance: MYCOPHENOLATE MOFETIL\MYCOPHENOLATE MOFETIL HYDROCHLORIDE
     Indication: PROPHYLAXIS AGAINST TRANSPLANT REJECTION
     Dosage: 1400 MG, QD (700 MILLIGRAM, TWO TIMES A DAY (BID))
     Route: 048

REACTIONS (3)
  - Overdose [Unknown]
  - Off label use [Unknown]
  - Renal impairment [Recovering/Resolving]

NARRATIVE: CASE EVENT DATE: 20190719
